FAERS Safety Report 22339182 (Version 2)
Quarter: 2023Q2

REPORT INFORMATION
  Report Type: Spontaneous
  Country: US (occurrence: US)
  Receive Date: 20230518
  Receipt Date: 20230609
  Transmission Date: 20230722
  Serious: No
  Sender: FDA-Public Use
  Company Number: US-GSKCCFUS-Case-01696210_AE-95720

PATIENT
  Age: 85 Year
  Sex: Male

DRUGS (2)
  1. SEREVENT DISKUS [Suspect]
     Active Substance: SALMETEROL XINAFOATE
     Indication: Product used for unknown indication
     Dosage: 1 PUFF(S), BID
     Route: 055
  2. ALBUTEROL [Concomitant]
     Active Substance: ALBUTEROL
     Indication: Product used for unknown indication
     Dosage: UNK

REACTIONS (7)
  - Wheezing [Unknown]
  - Breath sounds abnormal [Unknown]
  - Cough [Unknown]
  - Incorrect dose administered by device [Unknown]
  - Drug ineffective [Unknown]
  - Product dose omission issue [Unknown]
  - Product complaint [Unknown]

NARRATIVE: CASE EVENT DATE: 20230505
